FAERS Safety Report 10747327 (Version 3)
Quarter: 2015Q3

REPORT INFORMATION
  Report Type: Spontaneous
  Country: NZ (occurrence: NZ)
  Receive Date: 20150129
  Receipt Date: 20150706
  Transmission Date: 20151125
  Serious: Yes (Death, Other)
  Sender: FDA-Public Use
  Company Number: NZ-RANBAXY-2015RR-92103

PATIENT
  Age: 17 Month

DRUGS (1)
  1. PARACETAMOL [Suspect]
     Active Substance: ACETAMINOPHEN
     Indication: PRODUCT USED FOR UNKNOWN INDICATION
     Dosage: 93 MG/KG, DAILY
     Route: 048

REACTIONS (3)
  - Acute hepatic failure [Fatal]
  - Incorrect dose administered [Unknown]
  - Overdose [Unknown]
